FAERS Safety Report 9966999 (Version 1)
Quarter: 2014Q1

REPORT INFORMATION
  Report Type: Spontaneous
  Country: US (occurrence: US)
  Receive Date: 20140305
  Receipt Date: 20140305
  Transmission Date: 20141002
  Serious: No
  Sender: FDA-Public Use
  Company Number: US-009507513-1403USA000963

PATIENT
  Age: 84 Year
  Sex: Female

DRUGS (5)
  1. NASONEX [Suspect]
     Indication: RHINORRHOEA
     Dosage: 1 SPRAY TWICE A DAY IN EACH NOSTRILL
     Route: 045
     Dates: start: 20140217
  2. METOPROLOL [Concomitant]
  3. ZOCOR [Concomitant]
     Route: 048
  4. PRILOSEC [Concomitant]
     Route: 048
  5. COZAAR [Concomitant]

REACTIONS (2)
  - Malaise [Not Recovered/Not Resolved]
  - Drug ineffective [Not Recovered/Not Resolved]
